FAERS Safety Report 15229048 (Version 1)
Quarter: 2018Q3

REPORT INFORMATION
  Report Type: Spontaneous
  Country: US (occurrence: US)
  Receive Date: 20180801
  Receipt Date: 20180801
  Transmission Date: 20181010
  Serious: No
  Sender: FDA-Public Use
  Company Number: US-AMGEN-USASP2018077470

PATIENT
  Age: 47 Year
  Sex: Female

DRUGS (1)
  1. NPLATE [Suspect]
     Active Substance: ROMIPLOSTIM
     Indication: PRODUCT USED FOR UNKNOWN INDICATION
     Dosage: 115 MUG, QWK
     Route: 065

REACTIONS (5)
  - Platelet count decreased [Unknown]
  - Headache [Unknown]
  - Malaise [Unknown]
  - Drug dose omission [Unknown]
  - Pain [Unknown]
